FAERS Safety Report 24979882 (Version 2)
Quarter: 2025Q1

REPORT INFORMATION
  Report Type: Spontaneous
  Country: US (occurrence: US)
  Receive Date: 20250218
  Receipt Date: 20250318
  Transmission Date: 20250409
  Serious: No
  Sender: BIOGEN
  Company Number: US-BIOGEN-2019BI00787026

PATIENT
  Sex: Female

DRUGS (2)
  1. TYSABRI [Suspect]
     Active Substance: NATALIZUMAB
     Indication: Multiple sclerosis
     Route: 050
     Dates: start: 20241230
  2. TYSABRI [Suspect]
     Active Substance: NATALIZUMAB
     Route: 050
     Dates: start: 20180419, end: 20200818

REACTIONS (10)
  - Hypotension [Unknown]
  - Bronchitis [Unknown]
  - Neck pain [Unknown]
  - Back pain [Unknown]
  - Panic reaction [Unknown]
  - Confusional state [Unknown]
  - Malaise [Unknown]
  - Fall [Recovered/Resolved]
  - Headache [Unknown]
  - Fatigue [Recovered/Resolved]

NARRATIVE: CASE EVENT DATE: 20190101
